FAERS Safety Report 19217210 (Version 1)
Quarter: 2021Q2

REPORT INFORMATION
  Report Type: Spontaneous
  Country: US (occurrence: US)
  Receive Date: 20210505
  Receipt Date: 20210505
  Transmission Date: 20210717
  Serious: No
  Sender: FDA-Public Use
  Company Number: None

PATIENT
  Age: 21 Year
  Sex: Male
  Weight: 97.07 kg

DRUGS (3)
  1. VASCEPA [Suspect]
     Active Substance: ICOSAPENT ETHYL
  2. GENERIC ROSUVASTATIN [Suspect]
     Active Substance: ROSUVASTATIN
     Indication: BLOOD TRIGLYCERIDES INCREASED
  3. GENERIC ROSUVASTATIN [Suspect]
     Active Substance: ROSUVASTATIN
     Indication: ALSTROEM SYNDROME
     Route: 048
     Dates: start: 202001, end: 202003

REACTIONS (4)
  - Myalgia [None]
  - Dyslipidaemia [None]
  - Blood triglycerides abnormal [None]
  - Dyspepsia [None]
